FAERS Safety Report 7651971-1 (Version None)
Quarter: 2011Q3

REPORT INFORMATION
  Report Type: 
  Country: None (occurrence: None)
  Receive Date: 20110803
  Receipt Date: 20110722
  Transmission Date: 20111222
  Serious: No
  Sender: FDA-Public Use
  Company Number: US-BIOGENIDEC-2011BI027701

PATIENT
  Sex: Female

DRUGS (1)
  1. TYSABRI [Suspect]
     Indication: CROHN'S DISEASE
     Route: 042
     Dates: start: 20110203

REACTIONS (5)
  - ABDOMINAL PAIN [None]
  - HAEMORRHOIDS [None]
  - DIARRHOEA [None]
  - RECTAL HAEMORRHAGE [None]
  - DRUG INEFFECTIVE [None]
